FAERS Safety Report 15585425 (Version 9)
Quarter: 2019Q3

REPORT INFORMATION
  Report Type: Report from Study
  Country: US (occurrence: US)
  Receive Date: 20181102
  Receipt Date: 20190923
  Transmission Date: 20191004
  Serious: Yes (Death, Life-Threatening, Hospitalization)
  Sender: FDA-Public Use
  Company Number: US-ACTELION-A-NJ2017-159236

PATIENT
  Age: 33 Year
  Sex: Female
  Weight: 64.85 kg

DRUGS (10)
  1. VELETRI [Suspect]
     Active Substance: EPOPROSTENOL
     Indication: PULMONARY ARTERIAL HYPERTENSION
     Dosage: 18 NG/KG, PER MIN
     Route: 042
  2. VELETRI [Suspect]
     Active Substance: EPOPROSTENOL
     Dosage: 35 NG/KG, PER MIN
     Route: 042
  3. DILTIAZEM. [Concomitant]
     Active Substance: DILTIAZEM
  4. ORENITRAM [Concomitant]
     Active Substance: TREPROSTINIL
  5. COUMADIN [Concomitant]
     Active Substance: WARFARIN SODIUM
  6. OPSUMIT [Suspect]
     Active Substance: MACITENTAN
     Indication: PULMONARY ARTERIAL HYPERTENSION
     Dosage: 10 MG, QD
     Route: 048
     Dates: start: 20161110
  7. ADCIRCA [Concomitant]
     Active Substance: TADALAFIL
     Dosage: 20 MG, UNK
     Dates: start: 20171004
  8. ADEMPAS [Concomitant]
     Active Substance: RIOCIGUAT
  9. VELETRI [Suspect]
     Active Substance: EPOPROSTENOL
     Dosage: 50 NG/KG, PER MIN
     Route: 042
  10. HYDROCODONE BITARTRATE AND ACETAMINOPHEN [Concomitant]
     Active Substance: ACETAMINOPHEN\HYDROCODONE BITARTRATE
     Dosage: 10-325 MG
     Dates: start: 20180427

REACTIONS (33)
  - Catheter site rash [Unknown]
  - Pain in jaw [Unknown]
  - Heart rate increased [Unknown]
  - Pyrexia [Recovered/Resolved]
  - Blood culture positive [Recovered/Resolved]
  - Flank pain [Recovered/Resolved]
  - Pain in extremity [Unknown]
  - Headache [Not Recovered/Not Resolved]
  - Vein disorder [Unknown]
  - Yawning [Unknown]
  - Dermatitis contact [Unknown]
  - Infusion site irritation [Unknown]
  - Nausea [Recovered/Resolved]
  - Blood potassium decreased [Unknown]
  - Presyncope [Unknown]
  - Application site vesicles [Unknown]
  - Rash generalised [Unknown]
  - Dyspnoea [Unknown]
  - Flushing [Unknown]
  - Device related infection [Unknown]
  - Catheter culture positive [Recovered/Resolved]
  - Chills [Recovered/Resolved]
  - Fatigue [Unknown]
  - Pruritus [Unknown]
  - Vomiting [Unknown]
  - Death [Fatal]
  - Bacteraemia [Recovered/Resolved]
  - Catheter management [Unknown]
  - Hot flush [Unknown]
  - Staphylococcal infection [Recovered/Resolved]
  - Weight decreased [Unknown]
  - Dizziness [Unknown]
  - Pain [Unknown]

NARRATIVE: CASE EVENT DATE: 201807
